FAERS Safety Report 19591098 (Version 1)
Quarter: 2021Q3

REPORT INFORMATION
  Report Type: Spontaneous
  Country: CA (occurrence: CA)
  Receive Date: 20210721
  Receipt Date: 20210721
  Transmission Date: 20211014
  Serious: Yes (Death)
  Sender: FDA-Public Use
  Company Number: CA-ROCHE-2875043

PATIENT
  Age: 50 Year
  Sex: Male

DRUGS (15)
  1. METHYLPREDNISOLONE SODIUM SUCCINATE. [Concomitant]
     Active Substance: METHYLPREDNISOLONE SODIUM SUCCINATE
     Indication: PREMEDICATION
     Route: 042
  2. ROCALTROL [Concomitant]
     Active Substance: CALCITRIOL
  3. PREDNISONE. [Concomitant]
     Active Substance: PREDNISONE
  4. EPOETIN ALFA [Concomitant]
     Active Substance: ERYTHROPOIETIN
  5. IRON [Concomitant]
     Active Substance: IRON
     Dosage: 12.0 DOSAGE FORMS
     Route: 042
  6. ROSUVASTATIN. [Concomitant]
     Active Substance: ROSUVASTATIN
     Route: 058
  7. INSULIN [Concomitant]
     Active Substance: INSULIN NOS
  8. RANITIDINE. [Concomitant]
     Active Substance: RANITIDINE
  9. RABEPRAZOLE [Concomitant]
     Active Substance: RABEPRAZOLE
  10. RITUXIMAB. [Suspect]
     Active Substance: RITUXIMAB
     Indication: GRANULOMATOSIS WITH POLYANGIITIS
     Dosage: THERAPY DURATION: 2920.0 DAYS
     Route: 017
  11. ARANESP [Concomitant]
     Active Substance: DARBEPOETIN ALFA
  12. BENADRYL [Concomitant]
     Active Substance: DIPHENHYDRAMINE HYDROCHLORIDE
     Indication: PREMEDICATION
     Route: 048
  13. LORAZEPAM. [Concomitant]
     Active Substance: LORAZEPAM
  14. RUPATADINE FUMARATE [Concomitant]
     Active Substance: RUPATADINE FUMARATE
     Indication: PREMEDICATION
     Route: 048
  15. TYLENOL [Concomitant]
     Active Substance: ACETAMINOPHEN

REACTIONS (1)
  - Death [Fatal]
